FAERS Safety Report 23125021 (Version 1)
Quarter: 2023Q4

REPORT INFORMATION
  Report Type: Spontaneous
  Country: US (occurrence: US)
  Receive Date: 20231030
  Receipt Date: 20231030
  Transmission Date: 20240109
  Serious: No
  Sender: FDA-Public Use
  Company Number: US-EPIHEALTH-2023-US-015128

PATIENT
  Age: 63 Year
  Sex: Female
  Weight: 77.11 kg

DRUGS (1)
  1. RHOFADE [Suspect]
     Active Substance: OXYMETAZOLINE HYDROCHLORIDE
     Indication: Product used for unknown indication
     Dosage: APPLIED ONCE DAILY TO FACE
     Route: 061
     Dates: start: 20230426, end: 20230428

REACTIONS (1)
  - Perioral dermatitis [Recovered/Resolved]

NARRATIVE: CASE EVENT DATE: 20230429
